FAERS Safety Report 6811135-8 (Version None)
Quarter: 2010Q2

REPORT INFORMATION
  Report Type: 
  Country: None (occurrence: None)
  Receive Date: 20100630
  Receipt Date: 20090403
  Transmission Date: 20101027
  Serious: No
  Sender: FDA-Public Use
  Company Number: US-PFIZER INC-2009194221

PATIENT
  Sex: Female
  Weight: 65.8 kg

DRUGS (2)
  1. ESTRING [Suspect]
     Indication: VULVOVAGINAL DRYNESS
     Dosage: 2 MG, 1X/DAY
     Route: 067
     Dates: start: 20090314, end: 20090403
  2. SYNTHROID [Concomitant]

REACTIONS (1)
  - VULVOVAGINAL PRURITUS [None]
